FAERS Safety Report 8054042-8 (Version None)
Quarter: 2011Q4

REPORT INFORMATION
  Report Type: 
  Country: None (occurrence: None)
  Receive Date: 20111213
  Receipt Date: 20110819
  Transmission Date: 20120403
  Serious: No
  Sender: FDA-Public Use
  Company Number: 2011SP039480

PATIENT
  Age: 44 Year
  Sex: Male

DRUGS (12)
  1. AVAPRO [Concomitant]
  2. ASPIRIN [Concomitant]
  3. BYETTA [Concomitant]
  4. SAPHRIS [Suspect]
     Indication: BIPOLAR DISORDER
     Dosage: 10 MG;HS;SL
     Route: 060
     Dates: start: 20110101
  5. VALIUM [Concomitant]
  6. NISTAT [Concomitant]
  7. HYDROCHLOROTHIAZIDE [Concomitant]
  8. NEURONTIN [Concomitant]
  9. LIBRIUM [Concomitant]
  10. METFORMIN HCL [Concomitant]
  11. TRILIPIX [Concomitant]
  12. LOVAZA [Concomitant]

REACTIONS (4)
  - DIZZINESS [None]
  - BALANCE DISORDER [None]
  - INAPPROPRIATE SCHEDULE OF DRUG ADMINISTRATION [None]
  - FALL [None]
